FAERS Safety Report 21036334 (Version 6)
Quarter: 2022Q3

REPORT INFORMATION
  Report Type: Report from Study
  Country: CN (occurrence: None)
  Receive Date: 20220701
  Receipt Date: 20220902
  Transmission Date: 20221026
  Serious: Yes (Hospitalization)
  Sender: FDA-Public Use
  Company Number: CN-ROCHE-3124599

PATIENT
  Age: 57 Year
  Sex: Male
  Weight: 75 kg

DRUGS (51)
  1. GLOFITAMAB [Suspect]
     Active Substance: GLOFITAMAB
     Indication: Diffuse large B-cell lymphoma
     Dosage: ON 16/JUN/2022, HE RECEIVED MOST RECENT DOSE 2.5 MG OF STUDY DRUG GLOFITAMAB PRIOR TO SAE/AE.
     Route: 042
     Dates: start: 20220616
  2. TOCILIZUMAB [Suspect]
     Active Substance: TOCILIZUMAB
     Indication: Cytokine release syndrome
     Dosage: ON 18/JUN/2022, HE RECEIVED MOST RECENT DOSE 610 MG OF STUDY DRUG TOCILIZUMAB PRIOR TO SAE/AE.
     Route: 042
     Dates: start: 20220617
  3. OBINUTUZUMAB [Suspect]
     Active Substance: OBINUTUZUMAB
     Indication: Diffuse large B-cell lymphoma
     Dosage: ON 09/JUN/2022, HE RECEIVED MOST RECENT DOSE 1000 MG OF STUDY DRUG OBINUTUZUMAB PRIOR TO SAE/AE.
     Route: 042
     Dates: start: 20220609
  4. GEMCITABINE [Suspect]
     Active Substance: GEMCITABINE
     Indication: Diffuse large B-cell lymphoma
     Dosage: ON 10/JUN/2022, HE RECEIVED MOST RECENT DOSE 1840 MG OF STUDY DRUG GEMCITABINE PRIOR TO SAE/AE.
     Route: 042
     Dates: start: 20220610
  5. OXALIPLATIN [Suspect]
     Active Substance: OXALIPLATIN
     Indication: Diffuse large B-cell lymphoma
     Dosage: ON 10/JUN/2022, HE RECEIVED MOST RECENT DOSE 184 MG OF STUDY DRUG OXALIPLATIN PRIOR TO SAE/AE.
     Route: 042
     Dates: start: 20220610
  6. IRBESARTAN [Concomitant]
     Active Substance: IRBESARTAN
     Indication: Hypertension
     Route: 048
     Dates: start: 20211111
  7. OXYGEN [Concomitant]
     Active Substance: OXYGEN
     Indication: Hypoxia
  8. OXYCODONE [Concomitant]
     Active Substance: OXYCODONE
     Indication: Back pain
     Route: 048
     Dates: start: 20220524, end: 20220628
  9. OXYCODONE [Concomitant]
     Active Substance: OXYCODONE
     Route: 048
     Dates: start: 20220617, end: 20220624
  10. IBUPROFEN [Concomitant]
     Active Substance: IBUPROFEN
     Indication: Back pain
     Route: 048
     Dates: start: 20220524, end: 20220628
  11. IBUPROFEN [Concomitant]
     Active Substance: IBUPROFEN
     Indication: Cytokine release syndrome
     Route: 048
     Dates: start: 20220617, end: 20220617
  12. FUROSEMIDE [Concomitant]
     Active Substance: FUROSEMIDE
     Indication: Polyuria
     Route: 042
     Dates: start: 20220607, end: 20220607
  13. NIFEDIPINE [Concomitant]
     Active Substance: NIFEDIPINE
     Indication: Hypertension
     Route: 048
     Dates: start: 20220607
  14. PARECOXIB SODIUM [Concomitant]
     Active Substance: PARECOXIB SODIUM
     Indication: Back pain
     Route: 042
     Dates: start: 20220607, end: 20220607
  15. PARECOXIB SODIUM [Concomitant]
     Active Substance: PARECOXIB SODIUM
     Route: 042
     Dates: start: 20220608, end: 20220608
  16. LACTULOSE [Concomitant]
     Active Substance: LACTULOSE
     Indication: Constipation
     Route: 048
     Dates: start: 20220608, end: 20220614
  17. ACETAMINOPHEN\DIHYDROCODEINE BITARTRATE [Concomitant]
     Active Substance: ACETAMINOPHEN\DIHYDROCODEINE BITARTRATE
     Indication: Back pain
     Route: 048
     Dates: start: 20220608, end: 20220608
  18. METHYLPREDNISOLONE SODIUM SUCCINATE [Concomitant]
     Active Substance: METHYLPREDNISOLONE SODIUM SUCCINATE
     Indication: Hypersensitivity
     Route: 042
     Dates: start: 20220609, end: 20220609
  19. DIPHENHYDRAMINE [Concomitant]
     Active Substance: DIPHENHYDRAMINE
     Indication: Hypersensitivity
     Route: 030
     Dates: start: 20220609, end: 20220609
  20. DIPHENHYDRAMINE [Concomitant]
     Active Substance: DIPHENHYDRAMINE
     Route: 030
     Dates: start: 20220610, end: 20220610
  21. DIPHENHYDRAMINE [Concomitant]
     Active Substance: DIPHENHYDRAMINE
     Route: 030
     Dates: start: 20220616, end: 20220616
  22. DIPHENHYDRAMINE [Concomitant]
     Active Substance: DIPHENHYDRAMINE
     Route: 030
     Dates: start: 20220627, end: 20220627
  23. COMPOUND PARACETAMOL [Concomitant]
     Indication: Pyrexia
     Route: 048
     Dates: start: 20220609, end: 20220609
  24. COMPOUND PARACETAMOL [Concomitant]
     Route: 048
     Dates: start: 20220616, end: 20220616
  25. COMPOUND PARACETAMOL [Concomitant]
     Route: 048
     Dates: start: 20220627, end: 20220627
  26. COMPOUND PARACETAMOL [Concomitant]
     Route: 048
     Dates: start: 20220628, end: 20220628
  27. ILAPRAZOLE [Concomitant]
     Active Substance: ILAPRAZOLE
     Route: 042
     Dates: start: 20220609, end: 20220609
  28. ILAPRAZOLE [Concomitant]
     Active Substance: ILAPRAZOLE
     Route: 042
     Dates: start: 20220616, end: 20220616
  29. ILAPRAZOLE [Concomitant]
     Active Substance: ILAPRAZOLE
     Route: 042
     Dates: start: 20220621, end: 20220621
  30. ILAPRAZOLE [Concomitant]
     Active Substance: ILAPRAZOLE
     Route: 042
     Dates: start: 20220627, end: 20220627
  31. DEXAMETHASONE SODIUM PHOSPHATE [Concomitant]
     Active Substance: DEXAMETHASONE SODIUM PHOSPHATE
     Indication: Hypersensitivity
     Route: 042
     Dates: start: 20220610, end: 20220610
  32. DEXAMETHASONE SODIUM PHOSPHATE [Concomitant]
     Active Substance: DEXAMETHASONE SODIUM PHOSPHATE
     Route: 042
     Dates: start: 20220616, end: 20220616
  33. DEXAMETHASONE SODIUM PHOSPHATE [Concomitant]
     Active Substance: DEXAMETHASONE SODIUM PHOSPHATE
     Route: 042
     Dates: start: 20220627, end: 20220627
  34. DOLASETRON MESYLATE [Concomitant]
     Active Substance: DOLASETRON MESYLATE
     Indication: Vomiting
     Route: 042
     Dates: start: 20220610, end: 20220610
  35. RABEPRAZOLE SODIUM [Concomitant]
     Active Substance: RABEPRAZOLE SODIUM
     Route: 042
     Dates: start: 20220610, end: 20220610
  36. GRANULOCYTE COLONY-STIMULATING FACTOR NOS [Concomitant]
     Active Substance: GRANULOCYTE COLONY-STIMULATING FACTOR NOS
     Indication: Myelosuppression
     Route: 058
     Dates: start: 20220612, end: 20220614
  37. DEXTROSE\SODIUM CHLORIDE [Concomitant]
     Active Substance: DEXTROSE\SODIUM CHLORIDE
     Route: 042
     Dates: start: 20220615, end: 20220615
  38. DEXTROSE\SODIUM CHLORIDE [Concomitant]
     Active Substance: DEXTROSE\SODIUM CHLORIDE
     Route: 042
     Dates: start: 20220618, end: 20220618
  39. DEXTROSE\SODIUM CHLORIDE [Concomitant]
     Active Substance: DEXTROSE\SODIUM CHLORIDE
     Route: 042
     Dates: start: 20220620, end: 20220621
  40. TRAMADOL HYDROCHLORIDE [Concomitant]
     Active Substance: TRAMADOL HYDROCHLORIDE
     Indication: Back pain
     Route: 030
     Dates: start: 20220617, end: 20220617
  41. MORPHINE HYDROCHLORIDE [Concomitant]
     Active Substance: MORPHINE HYDROCHLORIDE
     Indication: Back pain
     Route: 058
     Dates: start: 20220617, end: 20220617
  42. FLURBIPROFEN AXETIL [Concomitant]
     Active Substance: FLURBIPROFEN AXETIL
     Indication: Back pain
     Route: 042
     Dates: start: 20220617, end: 20220617
  43. SODIUM CHLORIDE [Concomitant]
     Active Substance: SODIUM CHLORIDE
     Route: 042
     Dates: start: 20220618, end: 20220618
  44. LIPOSYN (R) INTRAVENOUS FAT EMULSION [Concomitant]
     Active Substance: LIPOSYN (R) INTRAVENOUS FAT EMULSION
     Indication: Fluid replacement
     Route: 042
     Dates: start: 20220618, end: 20220618
  45. LIPOSYN (R) INTRAVENOUS FAT EMULSION [Concomitant]
     Active Substance: LIPOSYN (R) INTRAVENOUS FAT EMULSION
     Route: 042
     Dates: start: 20220620, end: 20220621
  46. CELECOXIB [Concomitant]
     Active Substance: CELECOXIB
     Indication: Cytokine release syndrome
     Route: 048
     Dates: start: 20220618, end: 20220618
  47. POTASSIUM CHLORIDE [Concomitant]
     Active Substance: POTASSIUM CHLORIDE
     Indication: Hypokalaemia
     Route: 048
     Dates: start: 20220619, end: 20220620
  48. THROMBOPOIETIN [Concomitant]
     Active Substance: THROMBOPOIETIN
     Indication: Platelet count decreased
     Dosage: 15000 U
     Route: 058
     Dates: start: 20220620, end: 20220622
  49. ILAPRAZOLE [Concomitant]
     Active Substance: ILAPRAZOLE
     Route: 048
     Dates: start: 20220622, end: 20220628
  50. LIDOCAINE [Concomitant]
     Active Substance: LIDOCAINE
     Indication: Central venous catheterisation
     Route: 065
     Dates: start: 20220609, end: 20220609
  51. HEPARIN SODIUM [Concomitant]
     Active Substance: HEPARIN SODIUM
     Indication: Central venous catheterisation
     Dosage: 12500 U
     Route: 065
     Dates: start: 20220609, end: 20220609

REACTIONS (2)
  - Aspartate aminotransferase increased [Recovered/Resolved]
  - Alanine aminotransferase increased [Recovered/Resolved]

NARRATIVE: CASE EVENT DATE: 20220622
